FAERS Safety Report 12013344 (Version 1)
Quarter: 2016Q1

REPORT INFORMATION
  Report Type: Spontaneous
  Country: NL (occurrence: NL)
  Receive Date: 20160205
  Receipt Date: 20160205
  Transmission Date: 20160526
  Serious: Yes (Life-Threatening)
  Sender: FDA-Public Use
  Company Number: NL-ASTRAZENECA-2016SE11838

PATIENT
  Age: 652 Month
  Sex: Female
  Weight: 62 kg

DRUGS (2)
  1. QUETIAPINE [Suspect]
     Active Substance: QUETIAPINE
     Indication: DEPRESSION
     Route: 048
     Dates: start: 20160108, end: 20160129
  2. OXAZEPAM. [Concomitant]
     Active Substance: OXAZEPAM
     Route: 048
     Dates: start: 20100605

REACTIONS (2)
  - Suicidal behaviour [Recovering/Resolving]
  - Impulsive behaviour [Recovering/Resolving]

NARRATIVE: CASE EVENT DATE: 201601
